FAERS Safety Report 21815459 (Version 1)
Quarter: 2023Q1

REPORT INFORMATION
  Report Type: Spontaneous
  Country: FR (occurrence: FR)
  Receive Date: 20230104
  Receipt Date: 20230104
  Transmission Date: 20230418
  Serious: Yes (Other)
  Sender: FDA-Public Use
  Company Number: FR-AFSSAPS-PP20220880

PATIENT
  Age: 78 Year
  Sex: Female
  Weight: 42 kg

DRUGS (3)
  1. ALPRAZOLAM [Suspect]
     Active Substance: ALPRAZOLAM
     Indication: Anxiety
     Dosage: 0.5 MILLIGRAM, ONCE A DAY (0.5MG/J)
     Route: 048
  2. POSACONAZOLE [Suspect]
     Active Substance: POSACONAZOLE
     Indication: Fungal infection
     Dosage: 600 MILLIGRAM, ONCE A DAY (300MG*2X/J )
     Route: 048
     Dates: start: 20221005, end: 20221006
  3. SPORANOX [Suspect]
     Active Substance: ITRACONAZOLE
     Indication: Fungal infection
     Dosage: 400 MILLIGRAM, ONCE A DAY(200MG*2X/J)
     Route: 048
     Dates: start: 20220922, end: 20220926

REACTIONS (1)
  - Encephalopathy [Recovered/Resolved]

NARRATIVE: CASE EVENT DATE: 20220901
